FAERS Safety Report 5662724-8 (Version None)
Quarter: 2008Q1

REPORT INFORMATION
  Report Type: 
  Country: None (occurrence: None)
  Receive Date: 20080313
  Receipt Date: 20080306
  Transmission Date: 20080703
  Serious: Yes (Hospitalization)
  Sender: FDA-Public Use
  Company Number: JP-AVENTIS-200812171GDDC

PATIENT
  Age: 74 Year
  Sex: Male

DRUGS (6)
  1. NEUTROGIN [Suspect]
     Indication: NEUTROPENIA
     Route: 058
     Dates: start: 20080218, end: 20080222
  2. GEMZAR [Suspect]
  3. NAVELBINE [Suspect]
  4. LASIX [Suspect]
  5. ALDACTONE [Suspect]
  6. DEPAS [Suspect]

REACTIONS (1)
  - PNEUMONIA [None]
